FAERS Safety Report 4654322-X (Version None)
Quarter: 2005Q2

REPORT INFORMATION
  Report Type: 
  Country: None (occurrence: None)
  Receive Date: 20050404
  Receipt Date: 20041028
  Transmission Date: 20051028
  Serious: No
  Sender: FDA-Public Use
  Company Number: USA041082591

PATIENT
  Sex: Male

DRUGS (3)
  1. CYMBALTA [Suspect]
     Indication: DEPRESSION
     Dosage: 30 MG DAY
     Dates: start: 20041001
  2. FENTANYL [Concomitant]
  3. CELEBREX [Concomitant]

REACTIONS (3)
  - EXCITABILITY [None]
  - INSOMNIA [None]
  - NAUSEA [None]
